FAERS Safety Report 15155594 (Version 2)
Quarter: 2018Q4

REPORT INFORMATION
  Report Type: Report from Study
  Country: PL (occurrence: PL)
  Receive Date: 20180717
  Receipt Date: 20181221
  Transmission Date: 20190204
  Serious: Yes (Other)
  Sender: FDA-Public Use
  Company Number: PL-CHIESI USA INC.-PL-2018CHI000180

PATIENT
  Age: 0 Day
  Sex: Male
  Weight: 1.98 kg

DRUGS (4)
  1. CAFFEINE CITRATE. [Concomitant]
     Active Substance: CAFFEINE CITRATE
     Indication: INFANTILE APNOEA
     Dosage: 40 MG, QD
     Route: 042
     Dates: start: 20180623, end: 20180727
  2. CUROSURF [Suspect]
     Active Substance: PORACTANT ALFA
     Indication: NEONATAL RESPIRATORY DISTRESS SYNDROME
     Dosage: 3 ML, SINGLE
     Route: 039
     Dates: start: 20180623, end: 20180623
  3. AMPICILLIN [Concomitant]
     Active Substance: AMPICILLIN
     Indication: NEONATAL RESPIRATORY DISTRESS SYNDROME
     Dosage: 190 MG, QD
     Route: 042
     Dates: start: 20180623, end: 20180624
  4. GENTAMYCIN                         /00047101/ [Concomitant]
     Active Substance: GENTAMICIN
     Indication: INFECTION
     Dosage: 8 MG, QD
     Route: 042
     Dates: start: 20180623, end: 20180624

REACTIONS (1)
  - Neonatal hypoxia [Recovered/Resolved]

NARRATIVE: CASE EVENT DATE: 20180623
